FAERS Safety Report 9379718 (Version 1)
Quarter: 2013Q3

REPORT INFORMATION
  Report Type: Spontaneous
  Country: FR (occurrence: FR)
  Receive Date: 20130702
  Receipt Date: 20130702
  Transmission Date: 20140515
  Serious: Yes (Hospitalization)
  Sender: FDA-Public Use
  Company Number: FR-PFIZER INC-2013189383

PATIENT
  Age: 44 Year
  Sex: Female

DRUGS (2)
  1. ADEPAL [Suspect]
     Indication: CONTRACEPTION
     Route: 048
  2. EPITOMAX [Concomitant]
     Indication: EPILEPSY
     Dosage: 25 MG, 1X/DAY
     Route: 048

REACTIONS (2)
  - Ischaemic stroke [Recovered/Resolved]
  - Peripheral ischaemia [Recovered/Resolved]
